FAERS Safety Report 5422243-0 (Version None)
Quarter: 2007Q3

REPORT INFORMATION
  Report Type: 
  Country: None (occurrence: None)
  Receive Date: 20070821
  Receipt Date: 20070821
  Transmission Date: 20080115
  Serious: Yes (Other)
  Sender: FDA-Public Use
  Company Number: None

PATIENT
  Sex: Male
  Weight: 72.5755 kg

DRUGS (1)
  1. PRILOSEC [Suspect]
     Indication: HYPERCHLORHYDRIA
     Dosage: 1 PILL A DAY
     Dates: start: 20070822, end: 20070824

REACTIONS (10)
  - ABDOMINAL PAIN UPPER [None]
  - CHOKING [None]
  - DISCOMFORT [None]
  - DIZZINESS [None]
  - FAECES DISCOLOURED [None]
  - FAECES HARD [None]
  - FEELING COLD [None]
  - MUSCLE SPASMS [None]
  - PYREXIA [None]
  - RESPIRATION ABNORMAL [None]
